FAERS Safety Report 7434583-4 (Version None)
Quarter: 2011Q2

REPORT INFORMATION
  Report Type: 
  Country: None (occurrence: None)
  Receive Date: 20110425
  Receipt Date: 20110411
  Transmission Date: 20111010
  Serious: Yes (Hospitalization)
  Sender: FDA-Public Use
  Company Number: US-AMGEN-USASP2011019167

PATIENT
  Age: 66 Year
  Sex: Female

DRUGS (3)
  1. ENBREL [Suspect]
     Indication: PSORIASIS
     Dosage: 50 MG, QWK
     Dates: start: 20041121, end: 20100501
  2. CIMZIA [Concomitant]
  3. ENBREL [Suspect]
     Dosage: UNK
     Dates: start: 20110101

REACTIONS (6)
  - ESCHERICHIA INFECTION [None]
  - PANCREATITIS [None]
  - PHARYNGITIS STREPTOCOCCAL [None]
  - FATIGUE [None]
  - RENAL FAILURE [None]
  - URINARY TRACT INFECTION [None]
